FAERS Safety Report 12239291 (Version 1)
Quarter: 2016Q2

REPORT INFORMATION
  Report Type: Other
  Country: GB (occurrence: GB)
  Receive Date: 20160405
  Receipt Date: 20160405
  Transmission Date: 20160815
  Serious: Yes (Hospitalization, Other)
  Sender: FDA-Public Use
  Company Number: GB-MYLANLABS-2016M1013633

PATIENT

DRUGS (14)
  1. IVABRADINE [Suspect]
     Active Substance: IVABRADINE
     Dosage: 1 DF, BID
     Dates: start: 20160229
  2. ASPIRIN                            /00002701/ [Concomitant]
     Active Substance: ASPIRIN
     Dosage: 1 DF, QD
     Dates: start: 20151012
  3. ATORVASTATIN [Concomitant]
     Active Substance: ATORVASTATIN
     Dosage: 1 DF, QD
     Dates: start: 20151012
  4. FUROSEMIDE. [Concomitant]
     Active Substance: FUROSEMIDE
     Dosage: 1 DF, QD (EACH MORNING)
     Dates: start: 20160107, end: 20160229
  5. OMEPRAZOLE. [Concomitant]
     Active Substance: OMEPRAZOLE
     Dosage: 1 DF, QD
     Dates: start: 20160107
  6. ORLISTAT [Concomitant]
     Active Substance: ORLISTAT
     Dosage: 1 DF, TID
     Dates: start: 20160121
  7. SPIRONOLACTONE. [Concomitant]
     Active Substance: SPIRONOLACTONE
     Dosage: 1 DF, QD (IN THE MORNING)
     Dates: start: 20151217, end: 20160229
  8. COLECALCIFEROL [Concomitant]
     Active Substance: CHOLECALCIFEROL
     Dosage: 1 DF, UNK (TAKE ON TABLET MONDAYS AND THURSDAYS FOR 7 WEEKS)
     Dates: start: 20160107, end: 20160109
  9. ISOSORBIDE MONONITRATE. [Concomitant]
     Active Substance: ISOSORBIDE MONONITRATE
     Dosage: 1 DF, QD
     Dates: start: 20151012
  10. DOXAZOSIN [Concomitant]
     Active Substance: DOXAZOSIN\DOXAZOSIN MESYLATE
     Dosage: 1 DF, QD
     Dates: start: 20160208, end: 20160307
  11. AMLODIPINE MYLAN [Suspect]
     Active Substance: AMLODIPINE BESYLATE
     Dosage: UNK
     Dates: start: 20151012
  12. METFORMIN [Concomitant]
     Active Substance: METFORMIN HYDROCHLORIDE
     Dosage: 1 DF, BID (WITH MEALS.)
     Dates: start: 20151012
  13. CANDESARTAN [Concomitant]
     Active Substance: CANDESARTAN
     Dosage: 1 DF, QD
     Dates: start: 20151012
  14. COLECALCIFEROL [Concomitant]
     Active Substance: CHOLECALCIFEROL
     Dosage: 1 DF, QD
     Dates: start: 20160208

REACTIONS (5)
  - Periorbital oedema [Unknown]
  - Hypersensitivity [Unknown]
  - Swelling face [Unknown]
  - Urticaria [Unknown]
  - Circumoral oedema [Unknown]

NARRATIVE: CASE EVENT DATE: 20160317
